FAERS Safety Report 20775155 (Version 1)
Quarter: 2022Q2

REPORT INFORMATION
  Report Type: Spontaneous
  Country: US (occurrence: None)
  Receive Date: 20220502
  Receipt Date: 20220502
  Transmission Date: 20220721
  Serious: Yes (Hospitalization)
  Sender: FDA-Public Use
  Company Number: None

PATIENT
  Sex: Female

DRUGS (9)
  1. IMATINIB MESYLATE [Suspect]
     Active Substance: IMATINIB MESYLATE
     Indication: Chronic myeloid leukaemia
     Dosage: FREQUENCY : DAILY;?200 MG(2 TABLETS)
     Route: 048
     Dates: start: 20190719
  2. AMLODIPINE TAB [Concomitant]
  3. BISOPRL/HCTZ TAB [Concomitant]
  4. BRIMONIDINE SOL [Concomitant]
  5. CENTRUM TAB SILVER [Concomitant]
  6. FIBER TAB [Concomitant]
  7. IRON TAB [Concomitant]
  8. LORATADINE TAB [Concomitant]
  9. VITAMIN B12 TAB [Concomitant]

REACTIONS (1)
  - Therapy interrupted [None]
